FAERS Safety Report 5773182-7 (Version None)
Quarter: 2008Q2

REPORT INFORMATION
  Report Type: 
  Country: None (occurrence: None)
  Receive Date: 20080613
  Receipt Date: 20080613
  Transmission Date: 20081010
  Serious: Yes (Hospitalization)
  Sender: FDA-Public Use
  Company Number: None

PATIENT
  Age: 87 Year
  Sex: Male
  Weight: 110 kg

DRUGS (1)
  1. TIGECYCLINE 50MG [Suspect]
     Dosage: 50MG Q12 INTRATRACHEAL
     Route: 039

REACTIONS (1)
  - PLATELET COUNT DECREASED [None]
